FAERS Safety Report 6771984-1 (Version None)
Quarter: 2010Q2

REPORT INFORMATION
  Report Type: 
  Country: None (occurrence: None)
  Receive Date: 20100616
  Receipt Date: 20090717
  Transmission Date: 20101027
  Serious: No
  Sender: FDA-Public Use
  Company Number: US-ASTRAZENECA-2009SE05281

PATIENT
  Age: 880 Month
  Sex: Female
  Weight: 58.5 kg

DRUGS (2)
  1. RHINOCORT [Suspect]
     Indication: INFECTION PROPHYLAXIS
     Route: 045
     Dates: start: 20090601
  2. ZANTAC [Concomitant]

REACTIONS (2)
  - DRUG INEFFECTIVE [None]
  - SINUS DISORDER [None]
